FAERS Safety Report 8319213-1 (Version None)
Quarter: 2012Q2

REPORT INFORMATION
  Report Type: 
  Country: None (occurrence: None)
  Receive Date: 20120427
  Receipt Date: 20120423
  Transmission Date: 20120825
  Serious: Yes (Other)
  Sender: FDA-Public Use
  Company Number: FR-MERCK-1101FRA00053

PATIENT
  Age: 41 Year
  Sex: Male

DRUGS (13)
  1. SINEMET [Suspect]
     Route: 048
     Dates: start: 20000501, end: 20000101
  2. SINEMET [Suspect]
     Indication: PARKINSON'S DISEASE
     Route: 048
     Dates: start: 20031101, end: 20050301
  3. SINEMET [Suspect]
     Route: 048
     Dates: start: 20001101, end: 20031101
  4. BENSERAZIDE HYDROCHLORIDE AND LEVODOPA [Suspect]
     Indication: PARKINSON'S DISEASE
     Route: 065
     Dates: start: 19981001, end: 19991001
  5. SINEMET [Suspect]
     Route: 048
     Dates: start: 20050301, end: 20060201
  6. PERGOLIDE MESYLATE [Suspect]
     Route: 048
     Dates: start: 20050301, end: 20050101
  7. BROMOCRIPTINE MESYLATE [Concomitant]
     Indication: PARKINSON'S DISEASE
     Route: 048
     Dates: start: 19991101, end: 20001101
  8. SINEMET [Suspect]
     Route: 048
     Dates: start: 20000101, end: 20001101
  9. PERGOLIDE MESYLATE [Suspect]
     Route: 048
     Dates: start: 20050101, end: 20060201
  10. PERGOLIDE MESYLATE [Suspect]
     Route: 048
     Dates: start: 20020601, end: 20020101
  11. PERGOLIDE MESYLATE [Suspect]
     Route: 048
     Dates: start: 20031101, end: 20050301
  12. PERGOLIDE MESYLATE [Suspect]
     Indication: PARKINSON'S DISEASE
     Route: 048
     Dates: start: 20001101, end: 20020601
  13. PERGOLIDE MESYLATE [Suspect]
     Route: 048
     Dates: start: 20020101, end: 20031101

REACTIONS (8)
  - PATHOLOGICAL GAMBLING [None]
  - ABNORMAL BEHAVIOUR [None]
  - DOPAMINE DYSREGULATION SYNDROME [None]
  - PSYCHOMOTOR HYPERACTIVITY [None]
  - HYPERSEXUALITY [None]
  - OVERDOSE [None]
  - DELIRIUM [None]
  - DRUG DEPENDENCE [None]
